FAERS Safety Report 4978437-1 (Version None)
Quarter: 2006Q2

REPORT INFORMATION
  Report Type: 
  Country: None (occurrence: None)
  Receive Date: 20060420
  Receipt Date: 20060418
  Transmission Date: 20061013
  Serious: Yes (Other)
  Sender: FDA-Public Use
  Company Number: SE-BOEHRINGER INGELHEIM PHARMACEUTICALS, INC.-2006-SW-00185SW

PATIENT
  Sex: Female

DRUGS (12)
  1. SPIRIVA [Suspect]
     Indication: CHRONIC OBSTRUCTIVE PULMONARY DISEASE
     Route: 055
     Dates: start: 20060203, end: 20060208
  2. ATACAND [Concomitant]
  3. SIMVASTATIN ACTAVIS [Concomitant]
  4. FOLACIN [Concomitant]
  5. MEDROL [Concomitant]
  6. NITRAZEPAM RECIP [Concomitant]
  7. PYRIDOXIN RECIP [Concomitant]
  8. LEVAXIN [Concomitant]
  9. ETALPHA [Concomitant]
  10. TENORMIN [Concomitant]
  11. TROMBYL [Concomitant]
  12. TROMBYL [Concomitant]

REACTIONS (3)
  - ANGIONEUROTIC OEDEMA [None]
  - ORAL PRURITUS [None]
  - SWELLING FACE [None]
